FAERS Safety Report 5762844-3 (Version None)
Quarter: 2008Q2

REPORT INFORMATION
  Report Type: 
  Country: None (occurrence: None)
  Receive Date: 20080528
  Receipt Date: 20080131
  Transmission Date: 20081010
  Serious: Yes (Other)
  Sender: FDA-Public Use
  Company Number: PHEH2008US01238

PATIENT
  Sex: Female

DRUGS (3)
  1. TASIGNA [Suspect]
     Indication: CHRONIC MYELOID LEUKAEMIA
     Dosage: 400 MG, BID, ORAL
     Route: 048
  2. THYROID PREPARATIONS (NO INGREDIENTS/SUBSTANCES) [Concomitant]
  3. ZETIA [Concomitant]

REACTIONS (1)
  - BRADYCARDIA [None]
